FAERS Safety Report 13898069 (Version 2)
Quarter: 2017Q3

REPORT INFORMATION
  Report Type: Report from Study
  Country: FR (occurrence: FR)
  Receive Date: 20170823
  Receipt Date: 20170831
  Transmission Date: 20171127
  Serious: Yes (Death, Other)
  Sender: FDA-Public Use
  Company Number: FR-BRISTOL-MYERS SQUIBB COMPANY-BMS-2017-037716

PATIENT
  Age: 70 Year
  Sex: Female

DRUGS (9)
  1. UVEDOSE [Concomitant]
     Active Substance: CHOLECALCIFEROL
     Indication: PRODUCT USED FOR UNKNOWN INDICATION
     Route: 065
  2. ACIDE ZOLEDRONIQUE HOSPIRA [Suspect]
     Active Substance: ZOLEDRONIC ACID
     Indication: METASTASES TO BONE
     Route: 065
  3. PARACETAMOL [Concomitant]
     Active Substance: ACETAMINOPHEN
     Indication: PRODUCT USED FOR UNKNOWN INDICATION
     Route: 065
  4. DEBRIDAT                           /00465201/ [Concomitant]
     Active Substance: TRIMEBUTINE MALEATE
     Indication: PRODUCT USED FOR UNKNOWN INDICATION
     Route: 065
  5. NOCTAMIDE [Concomitant]
     Active Substance: LORMETAZEPAM
     Indication: PRODUCT USED FOR UNKNOWN INDICATION
     Route: 065
  6. NIVOLUMAB [Suspect]
     Active Substance: NIVOLUMAB
     Indication: LUNG NEOPLASM MALIGNANT
     Dosage: 177 MG, Q2WK
     Route: 042
     Dates: start: 20170330, end: 20170622
  7. GAVISCON                           /00237601/ [Concomitant]
     Active Substance: ALUMINUM HYDROXIDE\MAGNESIUM CARBONATE
     Indication: PRODUCT USED FOR UNKNOWN INDICATION
     Route: 065
  8. SURMONTIL [Concomitant]
     Active Substance: TRIMIPRAMINE MALEATE
     Indication: PRODUCT USED FOR UNKNOWN INDICATION
     Route: 065
  9. LEVOTHYROX [Concomitant]
     Active Substance: LEVOTHYROXINE
     Indication: PRODUCT USED FOR UNKNOWN INDICATION
     Route: 065

REACTIONS (9)
  - Pyrexia [Not Recovered/Not Resolved]
  - Abdominal pain [Fatal]
  - Gastritis [Unknown]
  - Device related infection [Fatal]
  - Influenza like illness [Recovered/Resolved]
  - Malignant neoplasm progression [Fatal]
  - Decreased appetite [Unknown]
  - Weight decreased [Unknown]
  - Spinal cord infection [Not Recovered/Not Resolved]

NARRATIVE: CASE EVENT DATE: 20170512
